FAERS Safety Report 12675958 (Version 1)
Quarter: 2016Q3

REPORT INFORMATION
  Report Type: Other
  Country: HR (occurrence: HR)
  Receive Date: 20160823
  Receipt Date: 20160823
  Transmission Date: 20161109
  Serious: Yes (Other)
  Sender: FDA-Public Use
  Company Number: HR-APOTEX-2016AP010658

PATIENT
  Age: 21 Year
  Sex: Male

DRUGS (3)
  1. HELEX TABLET [Concomitant]
     Indication: PERSONALITY DISORDER
     Dosage: 0.25 MG, BID
     Route: 048
  2. ARIPIPRAZOLE. [Concomitant]
     Active Substance: ARIPIPRAZOLE
     Indication: PERSONALITY DISORDER
     Dosage: 10 MG, QD
     Route: 048
  3. PAXIL [Suspect]
     Active Substance: PAROXETINE HYDROCHLORIDE
     Indication: PERSONALITY DISORDER
     Dosage: 20 MG, QD
     Route: 048
     Dates: start: 20160226, end: 201605

REACTIONS (2)
  - Drug dependence [Recovered/Resolved]
  - Nausea [Recovered/Resolved]

NARRATIVE: CASE EVENT DATE: 20160228
